FAERS Safety Report 8411694-8 (Version None)
Quarter: 2012Q2

REPORT INFORMATION
  Report Type: 
  Country: None (occurrence: None)
  Receive Date: 20120605
  Receipt Date: 20120530
  Transmission Date: 20120825
  Serious: Yes (Hospitalization)
  Sender: FDA-Public Use
  Company Number: US-PFIZER INC-2012072297

PATIENT
  Sex: Female

DRUGS (1)
  1. SUTENT [Suspect]
     Indication: CARCINOID SYNDROME
     Dosage: 50 MG, 1 CAPSULE DAILY

REACTIONS (2)
  - DRUG INTOLERANCE [None]
  - RESPIRATORY DISORDER [None]
